FAERS Safety Report 4526057-5 (Version None)
Quarter: 2004Q4

REPORT INFORMATION
  Report Type: 
  Country: None (occurrence: None)
  Receive Date: 20041213
  Receipt Date: 20041213
  Transmission Date: 20050328
  Serious: No
  Sender: FDA-Public Use
  Company Number: None

PATIENT
  Age: 84 Year
  Sex: Female
  Weight: 79.3795 kg

DRUGS (10)
  1. AMIODARONE  200 MG  UDL [Suspect]
     Indication: ATRIAL FIBRILLATION
     Dosage: 800 MG DAILY ORAL
     Route: 048
     Dates: start: 20041203, end: 20041206
  2. ZYPREXA [Suspect]
     Indication: DEMENTIA
     Dosage: 2.5 MG  DAILY ORAL
     Route: 048
     Dates: start: 20041203, end: 20041206
  3. METOPROLOL [Concomitant]
  4. XOPENEX [Concomitant]
  5. ZOLOFT [Concomitant]
  6. ATIVAN [Concomitant]
  7. SYNTHROID [Concomitant]
  8. ADVAIR DISKUS 100/50 [Concomitant]
  9. ASPIRIN [Concomitant]
  10. AMBIEN [Concomitant]

REACTIONS (3)
  - DYSPHAGIA [None]
  - SWOLLEN TONGUE [None]
  - TONGUE DISCOLOURATION [None]
